FAERS Safety Report 4472657-0 (Version None)
Quarter: 2004Q4

REPORT INFORMATION
  Report Type: 
  Country: None (occurrence: None)
  Receive Date: 20041013
  Receipt Date: 20041006
  Transmission Date: 20050328
  Serious: Yes (Hospitalization, Other)
  Sender: FDA-Public Use
  Company Number: US-BRISTOL-MYERS SQUIBB COMPANY-12724431

PATIENT
  Age: 70 Year
  Sex: Male

DRUGS (4)
  1. MEGACE [Suspect]
     Indication: DECREASED APPETITE
     Dosage: DECREASED TO 800 MG/DAY ON 01 OCT 2004
     Route: 048
     Dates: start: 20040925, end: 20041001
  2. LEXAPRO [Concomitant]
  3. ATROVENT [Concomitant]
  4. MULTI-VITAMIN [Concomitant]

REACTIONS (4)
  - ASTHENIA [None]
  - COAGULOPATHY [None]
  - LIVER FUNCTION TEST ABNORMAL [None]
  - TACHYCARDIA [None]
